FAERS Safety Report 6072324-6 (Version None)
Quarter: 2009Q1

REPORT INFORMATION
  Report Type: 
  Country: None (occurrence: None)
  Receive Date: 20090210
  Receipt Date: 20090116
  Transmission Date: 20090719
  Serious: No
  Sender: FDA-Public Use
  Company Number: PHEH2008US04995

PATIENT
  Sex: Female

DRUGS (2)
  1. ENABLEX [Suspect]
     Dosage: 7.5 MG, UNK
     Dates: start: 20080701
  2. ENABLEX [Suspect]
     Dosage: 15 MG, UNK
     Route: 048
     Dates: start: 20081201

REACTIONS (2)
  - DRUG INEFFECTIVE [None]
  - MALAISE [None]
